FAERS Safety Report 5976345-0 (Version None)
Quarter: 2008Q4

REPORT INFORMATION
  Report Type: 
  Country: None (occurrence: None)
  Receive Date: 20081202
  Receipt Date: 20081111
  Transmission Date: 20090506
  Serious: No
  Sender: FDA-Public Use
  Company Number: US-B.I. PHARMACEUTICALS,INC./RIDGEFIELD-2008-BP-16699BP

PATIENT
  Age: 73 Year
  Sex: Female

DRUGS (2)
  1. CATAPRES-TTS-1 [Suspect]
     Indication: HYPERTENSION
     Dosage: .2MG
     Route: 062
     Dates: start: 20080919
  2. CATAPRES-TTS-1 [Suspect]
     Dosage: .1MG
     Route: 062
     Dates: start: 20080807, end: 20080918

REACTIONS (4)
  - APPLICATION SITE ERYTHEMA [None]
  - APPLICATION SITE RASH [None]
  - APPLICATION SITE SWELLING [None]
  - BLOOD PRESSURE INADEQUATELY CONTROLLED [None]
